FAERS Safety Report 12869033 (Version 2)
Quarter: 2017Q1

REPORT INFORMATION
  Report Type: Report from Study
  Country: US (occurrence: US)
  Receive Date: 20161020
  Receipt Date: 20170124
  Transmission Date: 20170428
  Serious: No
  Sender: FDA-Public Use
  Company Number: US-AMGEN-USASL2016094971

PATIENT
  Age: 71 Year
  Sex: Male
  Weight: 137.41 kg

DRUGS (1)
  1. REPATHA [Suspect]
     Active Substance: EVOLOCUMAB
     Indication: DIABETES MELLITUS
     Dosage: 140 MG, Q2WK
     Route: 065
     Dates: start: 201605

REACTIONS (2)
  - Off label use [Unknown]
  - Drug dispensing error [Unknown]
